FAERS Safety Report 5136410-7 (Version None)
Quarter: 2006Q4

REPORT INFORMATION
  Report Type: 
  Country: None (occurrence: None)
  Receive Date: 20061027
  Receipt Date: 20061017
  Transmission Date: 20070319
  Serious: Yes (Other)
  Sender: FDA-Public Use
  Company Number: PHBS2006GB16233

PATIENT
  Age: 43 Year
  Sex: Female

DRUGS (2)
  1. CLODRONATE DISODIUM [Concomitant]
     Route: 065
  2. ZOLEDRONIC ACID [Suspect]
     Indication: MULTIPLE MYELOMA
     Route: 042

REACTIONS (8)
  - BONE DISORDER [None]
  - BONE LESION [None]
  - FACIAL PAIN [None]
  - IMPAIRED HEALING [None]
  - OSTEONECROSIS [None]
  - POOR PERSONAL HYGIENE [None]
  - SWELLING FACE [None]
  - WOUND DEBRIDEMENT [None]
